FAERS Safety Report 5887640-8 (Version None)
Quarter: 2008Q3

REPORT INFORMATION
  Report Type: 
  Country: None (occurrence: None)
  Receive Date: 20080918
  Receipt Date: 20080909
  Transmission Date: 20090109
  Serious: Yes (Death, Hospitalization, Other)
  Sender: FDA-Public Use
  Company Number: MX-BAYER-200813213LA

PATIENT
  Age: 70 Year
  Sex: Male
  Weight: 82 kg

DRUGS (20)
  1. SORAFENIB [Suspect]
     Indication: NON-SMALL CELL LUNG CANCER
     Route: 065
     Dates: start: 20071127, end: 20080115
  2. GEMCITABINE HCL [Suspect]
     Indication: NON-SMALL CELL LUNG CANCER
     Route: 042
     Dates: start: 20071127, end: 20080103
  3. CISPLATIN [Suspect]
     Indication: NON-SMALL CELL LUNG CANCER
     Route: 042
     Dates: start: 20071127, end: 20080103
  4. LOSARTAN [Concomitant]
     Indication: HYPERTENSION
     Route: 048
     Dates: start: 20071108, end: 20080114
  5. LOSARTAN [Concomitant]
     Route: 048
     Dates: start: 20071108
  6. GLYBURIDE [Concomitant]
     Indication: DIABETES MELLITUS
     Route: 048
     Dates: start: 20071108, end: 20080114
  7. METFORMIN HCL [Concomitant]
     Indication: DIABETES MELLITUS
     Route: 048
     Dates: start: 20071108, end: 20080114
  8. METFORMIN HCL [Concomitant]
     Route: 048
     Dates: start: 20071108
  9. AMLODIPINE [Concomitant]
     Indication: HYPERTENSION
     Route: 048
     Dates: start: 20071108
  10. PROPAFENONE HCL [Concomitant]
     Indication: HYPERTENSION
     Route: 048
     Dates: start: 20071108
  11. IPRATROPIUM BROMIDE [Concomitant]
     Indication: DYSPNOEA
     Route: 045
     Dates: start: 20071204
  12. IPRATROPIUM BROMIDE [Concomitant]
     Route: 048
     Dates: start: 20071108, end: 20080114
  13. OMEPRAZOLE [Concomitant]
     Indication: PROPHYLAXIS
     Route: 042
     Dates: start: 20071218
  14. OMEPRAZOLE [Concomitant]
     Route: 048
     Dates: start: 20071108, end: 20080114
  15. ACETAMINOPHEN [Concomitant]
     Indication: DYSPNOEA
     Route: 048
     Dates: start: 20071108, end: 20080114
  16. CODEINE SUL TAB [Concomitant]
     Indication: DYSPNOEA
     Route: 048
     Dates: start: 20071108, end: 20080114
  17. ACETAMINOPHEN W/ CODEINE [Concomitant]
     Indication: COUGH
     Route: 042
     Dates: start: 20071218
  18. AMIKACIN [Concomitant]
     Indication: ANTIBIOTIC THERAPY
     Route: 048
     Dates: start: 20071223, end: 20071227
  19. FLUCONAZOLE [Concomitant]
     Indication: ANTIBIOTIC THERAPY
     Route: 048
     Dates: start: 20071226, end: 20071226
  20. FLUCONAZOLE [Concomitant]
     Route: 048
     Dates: start: 20071227, end: 20071227

REACTIONS (11)
  - CARDIO-RESPIRATORY ARREST [None]
  - GASTROINTESTINAL TOXICITY [None]
  - GENERAL PHYSICAL HEALTH DETERIORATION [None]
  - HAEMATOTOXICITY [None]
  - LUNG NEOPLASM MALIGNANT [None]
  - MUCOSAL INFLAMMATION [None]
  - NEUTROPENIA [None]
  - PNEUMONIA [None]
  - RESPIRATORY DISTRESS [None]
  - STOMATITIS [None]
  - UPPER GASTROINTESTINAL HAEMORRHAGE [None]
